FAERS Safety Report 23424734 (Version 2)
Quarter: 2024Q1

REPORT INFORMATION
  Report Type: Spontaneous
  Country: ES (occurrence: ES)
  Receive Date: 20240120
  Receipt Date: 20240202
  Transmission Date: 20240409
  Serious: Yes (Other)
  Sender: FDA-Public Use
  Company Number: ES-UCBSA-2024002569

PATIENT
  Sex: Female
  Weight: 10 kg

DRUGS (5)
  1. KEPPRA [Suspect]
     Active Substance: LEVETIRACETAM
     Indication: Epilepsy
     Dosage: 0.7 MILLILITER
     Route: 048
  2. KEPPRA [Suspect]
     Active Substance: LEVETIRACETAM
     Dosage: 1 MILLILITER, 2X/DAY (BID)
     Route: 048
     Dates: start: 202311
  3. KEPPRA [Suspect]
     Active Substance: LEVETIRACETAM
     Dosage: 1.4 MILLILITER, 2X/DAY (BID)
     Route: 048
     Dates: start: 20231218
  4. CARNICOR [CARNITINE] [Concomitant]
     Indication: Product used for unknown indication
     Dosage: 1.3 MILLILITER, 2X/DAY (BID),EVERY 12 H
  5. VITAMIN B12 [Concomitant]
     Active Substance: CYANOCOBALAMIN
     Indication: Product used for unknown indication
     Dosage: 1 TIME PER WEEK

REACTIONS (3)
  - Petit mal epilepsy [Not Recovered/Not Resolved]
  - Tongue discolouration [Not Recovered/Not Resolved]
  - Tooth discolouration [Not Recovered/Not Resolved]

NARRATIVE: CASE EVENT DATE: 20231218
